FAERS Safety Report 9049923 (Version 1)
Quarter: 2013Q1

REPORT INFORMATION
  Report Type: Spontaneous
  Country: FR (occurrence: FR)
  Receive Date: 20130205
  Receipt Date: 20130205
  Transmission Date: 20140127
  Serious: Yes (Hospitalization)
  Sender: FDA-Public Use
  Company Number: FR-AMGEN-FRASP2013005727

PATIENT
  Age: 34 Year
  Sex: Female

DRUGS (5)
  1. NPLATE [Suspect]
     Indication: IDIOPATHIC THROMBOCYTOPENIC PURPURA
     Dosage: 2 MUG/KG, UNK
     Route: 058
     Dates: start: 200910, end: 201210
  2. TEGELINE [Suspect]
     Dosage: 10G/200ML
     Dates: start: 20130106
  3. MABTHERA [Concomitant]
     Dosage: 375 MG/M2, UNK
     Dates: start: 20120126, end: 20120220
  4. ARIXTRA [Concomitant]
  5. IMUREL                             /00001501/ [Concomitant]
     Dosage: 150 MG, QD

REACTIONS (1)
  - Pulmonary embolism [Recovered/Resolved]
